FAERS Safety Report 10818600 (Version 2)
Quarter: 2015Q2

REPORT INFORMATION
  Report Type: Spontaneous
  Country: JP (occurrence: JP)
  Receive Date: 20150218
  Receipt Date: 20150619
  Transmission Date: 20150821
  Serious: Yes (Hospitalization, Other)
  Sender: FDA-Public Use
  Company Number: JP-GLAXOSMITHKLINE-JP2015JPN011415

PATIENT
  Age: 74 Year
  Sex: Male
  Weight: 70 kg

DRUGS (17)
  1. VOTRIENT [Suspect]
     Active Substance: PAZOPANIB HYDROCHLORIDE
     Dosage: 400 MG, QD
     Route: 048
     Dates: start: 20141224, end: 20150121
  2. CRESTOR [Concomitant]
     Active Substance: ROSUVASTATIN CALCIUM
     Dosage: UNK
  3. GASTER [Concomitant]
     Active Substance: FAMOTIDINE
     Dosage: UNK
  4. FLUITRAN [Concomitant]
     Active Substance: TRICHLORMETHIAZIDE
     Dosage: UNK
  5. SELOKEN L [Concomitant]
     Dosage: UNK
  6. LOPRESSOR [Concomitant]
     Active Substance: METOPROLOL TARTRATE
     Dosage: UNK
  7. TAGAMET [Concomitant]
     Active Substance: CIMETIDINE
     Dosage: UNK
  8. VOTRIENT [Suspect]
     Active Substance: PAZOPANIB HYDROCHLORIDE
     Dosage: 600 MG, QD
     Route: 048
     Dates: start: 20141126, end: 20141223
  9. BLOPRESS [Concomitant]
     Active Substance: CANDESARTAN CILEXETIL
     Dosage: UNK
  10. TRAZENTA [Concomitant]
     Active Substance: LINAGLIPTIN
     Dosage: UNK
  11. SUMIFERON [Concomitant]
     Active Substance: INTERFERON ALFA-N1
     Dosage: 3 MILLION IU, Z
     Dates: start: 20131217, end: 20140917
  12. MOBIC [Concomitant]
     Active Substance: MELOXICAM
     Dosage: UNK
  13. FRANDOL [Concomitant]
     Active Substance: ISOSORBIDE DINITRATE
     Dosage: UNK
  14. ADALAT CC [Concomitant]
     Active Substance: NIFEDIPINE
     Dosage: UNK
  15. GASTER [Concomitant]
     Active Substance: FAMOTIDINE
     Dosage: UNK
  16. BAYASPIRIN [Concomitant]
     Active Substance: ASPIRIN
     Dosage: UNK
  17. VOTRIENT [Suspect]
     Active Substance: PAZOPANIB HYDROCHLORIDE
     Indication: RENAL CELL CARCINOMA
     Dosage: 800 MG, QD
     Route: 048
     Dates: start: 20141009, end: 20141125

REACTIONS (16)
  - Computerised tomogram thorax abnormal [Unknown]
  - Dyspnoea exertional [Unknown]
  - Dyspnoea [Unknown]
  - Liver disorder [Unknown]
  - Faeces soft [Unknown]
  - Dysgeusia [Unknown]
  - Pleural effusion [Unknown]
  - Interstitial lung disease [Recovering/Resolving]
  - Bronchiectasis [Unknown]
  - Blood pressure increased [Unknown]
  - Inflammation [Unknown]
  - Arteriosclerosis coronary artery [Unknown]
  - Mitral valve calcification [Unknown]
  - Diarrhoea [Unknown]
  - Fatigue [Unknown]
  - Aortic calcification [Unknown]

NARRATIVE: CASE EVENT DATE: 201412
